FAERS Safety Report 21571741 (Version 2)
Quarter: 2022Q4

REPORT INFORMATION
  Report Type: Spontaneous
  Country: AR (occurrence: AR)
  Receive Date: 20221109
  Receipt Date: 20221222
  Transmission Date: 20230112
  Serious: No
  Sender: FDA-Public Use
  Company Number: AR-PFIZER INC-PV202200093749

PATIENT
  Age: 52 Year
  Sex: Female

DRUGS (1)
  1. GENOTROPIN [Suspect]
     Active Substance: SOMATROPIN
     Indication: Growth hormone deficiency
     Dosage: 0.6 TO 1 MG 7 TIMES A WEEK
     Dates: start: 20170608

REACTIONS (1)
  - Needle issue [Unknown]
